FAERS Safety Report 11181988 (Version 1)
Quarter: 2015Q2

REPORT INFORMATION
  Report Type: Spontaneous
  Country: US (occurrence: US)
  Receive Date: 20150611
  Receipt Date: 20150611
  Transmission Date: 20150821
  Serious: No
  Sender: FDA-Public Use
  Company Number: US-ASTELLAS-2015US011463

PATIENT
  Sex: Male

DRUGS (3)
  1. XTANDI [Suspect]
     Active Substance: ENZALUTAMIDE
     Indication: PROSTATE CANCER
     Dosage: 2 DF(2 PILLS), ONCE DAILY
     Route: 065
  2. XTANDI [Suspect]
     Active Substance: ENZALUTAMIDE
     Dosage: 4 DF ONCE DAILY  (2 PILLS IN AM AND 2 PILLS IN PM)
     Route: 065
  3. XTANDI [Suspect]
     Active Substance: ENZALUTAMIDE
     Dosage: 4 DF(4 PILLS), ONCE DAILY
     Route: 065
     Dates: start: 20150212

REACTIONS (6)
  - Nausea [Unknown]
  - Inappropriate schedule of drug administration [Unknown]
  - Abdominal pain upper [Unknown]
  - Underdose [Unknown]
  - Upper-airway cough syndrome [Unknown]
  - Drug prescribing error [Unknown]
